FAERS Safety Report 6573140-9 (Version None)
Quarter: 2010Q1

REPORT INFORMATION
  Report Type: 
  Country: None (occurrence: None)
  Receive Date: 20100208
  Receipt Date: 20100128
  Transmission Date: 20100710
  Serious: Yes (Hospitalization)
  Sender: FDA-Public Use
  Company Number: CA-ELI_LILLY_AND_COMPANY-CA201001006147

PATIENT
  Age: 62 Year
  Sex: Female

DRUGS (11)
  1. FORTEO [Suspect]
     Indication: OSTEOPOROSIS
     Dosage: 20 UG, DAILY (1/D)
     Route: 058
     Dates: start: 20090701, end: 20100112
  2. FORTEO [Suspect]
     Dosage: 20 UG, DAILY (1/D)
     Route: 058
     Dates: start: 20100128
  3. CALCITE [Concomitant]
     Dosage: UNK, UNKNOWN
     Route: 065
  4. BABY ASPIRIN [Concomitant]
     Dosage: UNK, UNKNOWN
     Route: 065
  5. COUMADIN [Concomitant]
     Dosage: UNK, UNKNOWN
     Route: 065
  6. PREDNISONE [Concomitant]
     Dosage: UNK, UNKNOWN
     Route: 065
  7. COREG [Concomitant]
     Dosage: UNK, UNKNOWN
     Route: 065
  8. NORVASC [Concomitant]
     Dosage: UNK, UNKNOWN
     Route: 065
  9. LOSEC [Concomitant]
     Dosage: UNK, UNKNOWN
     Route: 065
  10. PLAVIX [Concomitant]
     Dosage: UNK, UNKNOWN
     Route: 065
  11. CRESTOR [Concomitant]
     Dosage: UNK, UNKNOWN
     Route: 065

REACTIONS (3)
  - DRUG DOSE OMISSION [None]
  - FALL [None]
  - FEMUR FRACTURE [None]
